FAERS Safety Report 19421834 (Version 2)
Quarter: 2021Q3

REPORT INFORMATION
  Report Type: Report from Study
  Country: None (occurrence: US)
  Receive Date: 20210616
  Receipt Date: 20210724
  Transmission Date: 20211014
  Serious: Yes (Death, Hospitalization)
  Sender: FDA-Public Use
  Company Number: US-ABBVIE-21K-163-3951587-00

PATIENT
  Age: 66 Year
  Sex: Male
  Weight: 127.12 kg

DRUGS (3)
  1. VENCLEXTA [Suspect]
     Active Substance: VENETOCLAX
     Indication: ACUTE MYELOID LEUKAEMIA
     Route: 048
     Dates: start: 202101, end: 20210610
  2. LEVOTHYROXINE. [Concomitant]
     Active Substance: LEVOTHYROXINE
     Indication: THYROID DISORDER
  3. MAGNESIUM [Concomitant]
     Active Substance: MAGNESIUM
     Indication: PRODUCT USED FOR UNKNOWN INDICATION

REACTIONS (7)
  - Malaise [Unknown]
  - Neutropenia [Unknown]
  - Hospitalisation [Recovered/Resolved]
  - Hypotension [Unknown]
  - Heart rate decreased [Unknown]
  - Fatigue [Unknown]
  - Disease complication [Fatal]

NARRATIVE: CASE EVENT DATE: 2021
